FAERS Safety Report 4638946-1 (Version None)
Quarter: 2005Q2

REPORT INFORMATION
  Report Type: 
  Country: None (occurrence: None)
  Receive Date: 20050419
  Receipt Date: 20050407
  Transmission Date: 20051028
  Serious: Yes (Hospitalization)
  Sender: FDA-Public Use
  Company Number: FR-GLAXOSMITHKLINE-B0377116A

PATIENT
  Age: 45 Year
  Sex: Female

DRUGS (2)
  1. DEROXAT [Suspect]
     Indication: ILL-DEFINED DISORDER
     Dosage: 280MG PER DAY
     Route: 048
     Dates: start: 20050308, end: 20050314
  2. LEXOMIL [Suspect]
     Dosage: 90MG PER DAY
     Route: 048
     Dates: end: 20050314

REACTIONS (3)
  - INTENTIONAL MISUSE [None]
  - NYSTAGMUS [None]
  - SUICIDE ATTEMPT [None]
